FAERS Safety Report 15463633 (Version 1)
Quarter: 2018Q4

REPORT INFORMATION
  Report Type: Spontaneous
  Country: GB (occurrence: GB)
  Receive Date: 20181004
  Receipt Date: 20181004
  Transmission Date: 20190204
  Serious: Yes (Disabling)
  Sender: FDA-Public Use
  Company Number: GB-PERRIGO-18GB010056

PATIENT
  Age: 21 Year
  Sex: Female
  Weight: 52.55 kg

DRUGS (1)
  1. COLD RELIEF CAPSULES 12063/0003 [Suspect]
     Active Substance: ACETAMINOPHEN\CAFFEINE\PHENYLEPHRINE HYDROCHLORIDE
     Indication: RHINORRHOEA
     Dosage: 2 CAPSULES AT 5PM, 2 CAPSULES AT 10PM
     Route: 048
     Dates: start: 20180908, end: 20180908

REACTIONS (1)
  - Nausea [Recovered/Resolved with Sequelae]

NARRATIVE: CASE EVENT DATE: 20180908
